FAERS Safety Report 6223297-4 (Version None)
Quarter: 2009Q2

REPORT INFORMATION
  Report Type: 
  Country: None (occurrence: None)
  Receive Date: 20090609
  Receipt Date: 20090527
  Transmission Date: 20091009
  Serious: Yes (Disabling)
  Sender: FDA-Public Use
  Company Number: DK-WYE-H09576609

PATIENT
  Age: 77 Year
  Sex: Female

DRUGS (6)
  1. CORDARONE [Suspect]
     Indication: ATRIAL FIBRILLATION
     Dosage: 200 MG 1X PER 1 DAY ORAL; 200 MG 2X PER 1 DAY ORAL
     Route: 048
     Dates: start: 20090226, end: 20090316
  2. CORDARONE [Suspect]
     Indication: ATRIAL FIBRILLATION
     Dosage: 200 MG 1X PER 1 DAY ORAL; 200 MG 2X PER 1 DAY ORAL
     Route: 048
     Dates: start: 20090317, end: 20090427
  3. WARFARIN SODIUM [Concomitant]
  4. POTASSIUM CHLORIDE [Concomitant]
  5. FUROSEMIDE [Concomitant]
  6. MICARDIS [Concomitant]

REACTIONS (2)
  - ARTHRALGIA [None]
  - VISUAL ACUITY REDUCED [None]
